FAERS Safety Report 5777507-8 (Version None)
Quarter: 2008Q2

REPORT INFORMATION
  Report Type: 
  Country: None (occurrence: None)
  Receive Date: 20080618
  Receipt Date: 20080610
  Transmission Date: 20081010
  Serious: Yes (Hospitalization)
  Sender: FDA-Public Use
  Company Number: AU-ROCHE-551079

PATIENT
  Sex: Male
  Weight: 72 kg

DRUGS (7)
  1. CAPECITABINE [Suspect]
     Dosage: DOSE REPORTED AS 2.2500 MG/M^2/D
     Route: 048
     Dates: start: 20070213
  2. CAPECITABINE [Suspect]
     Route: 048
     Dates: start: 20080123, end: 20080206
  3. BEVACIZUMAB [Suspect]
     Route: 042
     Dates: start: 20080123, end: 20080206
  4. VOLTAREN [Concomitant]
     Indication: ADVERSE EVENT
     Dosage: DRUG REPORTED AS VOLTARIN.FREQUENCY- 1 UNITS DAY
     Route: 048
     Dates: start: 20080131, end: 20080201
  5. ACETAMINOPHEN W/ CODEINE [Concomitant]
     Indication: ADVERSE EVENT
     Dosage: FREQUENCY- 1 UNITS DAY.
     Route: 048
     Dates: start: 20080130, end: 20080130
  6. ACETAMINOPHEN W/ CODEINE [Concomitant]
     Dosage: FREQUENCY- 1 UNITS DAY.
     Route: 048
     Dates: start: 20080130, end: 20080130
  7. ACETAMINOPHEN [Concomitant]
     Indication: ADVERSE EVENT
     Dosage: FREQUENCY- 4 UNITS DAY
     Route: 048
     Dates: start: 20080103, end: 20080204

REACTIONS (2)
  - INTRACRANIAL HYPOTENSION [None]
  - SCIATICA [None]
